FAERS Safety Report 23145587 (Version 1)
Quarter: 2023Q4

REPORT INFORMATION
  Report Type: Other
  Country: PL (occurrence: PL)
  Receive Date: 20231103
  Receipt Date: 20231103
  Transmission Date: 20240109
  Serious: Yes (Hospitalization)
  Sender: FDA-Public Use
  Company Number: PL-Merck Healthcare KGaA-2023483367

PATIENT
  Age: 47 Year
  Sex: Female

DRUGS (8)
  1. METFORMIN [Suspect]
     Active Substance: METFORMIN HYDROCHLORIDE
     Indication: Type 2 diabetes mellitus
  2. IRON [Concomitant]
     Active Substance: IRON
     Indication: Anaemia
  3. LEVOTHYROXINE [Concomitant]
     Active Substance: LEVOTHYROXINE
     Indication: Hypothyroidism
     Dosage: OF 200 PG/D A DAY IN THE MORNING BEFORE EATING OR DRINKING,
  4. ROSUVASTATIN [Concomitant]
     Active Substance: ROSUVASTATIN
     Indication: Product used for unknown indication
  5. RAMIPRIL [Concomitant]
     Active Substance: RAMIPRIL
     Indication: Hypotension
     Dosage: IN THE MORNING
  6. METOPROLOL [Concomitant]
     Active Substance: METOPROLOL
     Indication: Hypotension
     Dosage: IN THE MORNING
  7. PANTOPRAZOLE [Concomitant]
     Active Substance: PANTOPRAZOLE
     Indication: Gastrooesophageal reflux disease
  8. VITAMIN D NOS [Concomitant]
     Active Substance: VITAMIN D NOS
     Indication: Product used for unknown indication

REACTIONS (3)
  - Diabetes mellitus inadequate control [Unknown]
  - Gastrointestinal disorder [Unknown]
  - Drug ineffective [Unknown]
